FAERS Safety Report 7055177-9 (Version None)
Quarter: 2010Q4

REPORT INFORMATION
  Report Type: 
  Country: None (occurrence: None)
  Receive Date: 20101021
  Receipt Date: 20101013
  Transmission Date: 20110411
  Serious: Yes (Hospitalization)
  Sender: FDA-Public Use
  Company Number: KR-ASTRAZENECA-2010SE48262

PATIENT
  Age: 24254 Day
  Sex: Male

DRUGS (6)
  1. CRESTOR [Suspect]
     Indication: HYPERLIPIDAEMIA
     Route: 048
     Dates: start: 20051225
  2. ATACAND [Concomitant]
     Indication: HYPERTENSION
     Route: 048
  3. DILATREND [Concomitant]
     Indication: HYPERTENSION
  4. PLAVIX [Concomitant]
     Indication: CORONARY ARTERY OCCLUSION
     Dates: start: 20051225
  5. ASPIRIN [Concomitant]
     Indication: CORONARY ARTERY OCCLUSION
  6. SIGMART [Concomitant]
     Indication: CORONARY ARTERY OCCLUSION

REACTIONS (1)
  - DIVERTICULITIS [None]
